FAERS Safety Report 17365850 (Version 1)
Quarter: 2020Q1

REPORT INFORMATION
  Report Type: Report from Study
  Country: IT (occurrence: IT)
  Receive Date: 20200204
  Receipt Date: 20200204
  Transmission Date: 20200409
  Serious: Yes (Hospitalization)
  Sender: FDA-Public Use
  Company Number: IT-MYLANLABS-2020M1011701

PATIENT
  Age: 70 Year
  Sex: Male

DRUGS (2)
  1. CLOPIDOGREL [Suspect]
     Active Substance: CLOPIDOGREL BISULFATE
     Indication: CORONARY ARTERIAL STENT INSERTION
     Dosage: 1 DOSAGE FORM, QD
     Route: 048
     Dates: start: 20170901, end: 20191011
  2. ACETYLSALICYLIC ACID [Interacting]
     Active Substance: ASPIRIN
     Indication: CORONARY ARTERIAL STENT INSERTION
     Dosage: 100 MILLIGRAM, QD
     Route: 048
     Dates: start: 20170901, end: 20191011

REACTIONS (4)
  - Cerebral haemorrhage [Recovered/Resolved with Sequelae]
  - Haematoma [Recovered/Resolved with Sequelae]
  - Hemiparesis [Recovered/Resolved with Sequelae]
  - Drug interaction [Recovered/Resolved with Sequelae]

NARRATIVE: CASE EVENT DATE: 20191011
